FAERS Safety Report 8934324 (Version 1)
Quarter: 2012Q4

REPORT INFORMATION
  Report Type: 
  Country: US (occurrence: US)
  Receive Date: 20121129
  Receipt Date: 20121129
  Transmission Date: 20130627
  Serious: No
  Sender: FDA-Public Use
  Company Number: US-PFIZER INC-2012297378

PATIENT
  Age: 71 Year
  Sex: Female

DRUGS (1)
  1. SUTENT [Suspect]
     Indication: KIDNEY CANCER
     Dosage: 50 mg, 1x/day
     Dates: start: 20120215

REACTIONS (2)
  - Disease progression [Unknown]
  - Renal cancer [Unknown]
